FAERS Safety Report 10630541 (Version 1)
Quarter: 2014Q4

REPORT INFORMATION
  Report Type: Spontaneous
  Country: US (occurrence: US)
  Receive Date: 20141205
  Receipt Date: 20141205
  Transmission Date: 20150529
  Serious: No
  Sender: FDA-Public Use
  Company Number: US-BRISTOL-MYERS SQUIBB COMPANY-21449210

PATIENT
  Age: 65 Year
  Sex: Male
  Weight: 111.11 kg

DRUGS (3)
  1. ACTOS [Concomitant]
     Active Substance: PIOGLITAZONE HYDROCHLORIDE
  2. BYETTA [Suspect]
     Active Substance: EXENATIDE
     Dosage: ONGOING
     Route: 058
  3. METFORMIN HCL [Concomitant]
     Active Substance: METFORMIN HYDROCHLORIDE

REACTIONS (1)
  - Weight decreased [Recovered/Resolved]
